FAERS Safety Report 6992311-0 (Version None)
Quarter: 2010Q3

REPORT INFORMATION
  Report Type: 
  Country: None (occurrence: None)
  Receive Date: 20100917
  Receipt Date: 20100910
  Transmission Date: 20110219
  Serious: Yes (Other)
  Sender: FDA-Public Use
  Company Number: US-BAYER-201019287BCC

PATIENT
  Age: 90 Year
  Sex: Female
  Weight: 64 kg

DRUGS (4)
  1. FULL-STRENGTH STORE BRAND ASPIRIN [Suspect]
     Indication: FATIGUE
     Dosage: TOTAL DAILY DOSE: 12 DF  UNIT DOSE: 1 DF
     Route: 048
     Dates: start: 19390101, end: 20080101
  2. VITAMIN D3 [Concomitant]
     Route: 065
  3. SYNTHROID [Concomitant]
     Indication: HYPOTHYROIDISM
     Route: 065
  4. SUPPLEMENTS NOS [Concomitant]
     Indication: OSTEOPOROSIS

REACTIONS (1)
  - RECTAL HAEMORRHAGE [None]
